FAERS Safety Report 10251578 (Version 1)
Quarter: 2014Q2

REPORT INFORMATION
  Report Type: Spontaneous
  Country: US (occurrence: US)
  Receive Date: 20140623
  Receipt Date: 20140623
  Transmission Date: 20141212
  Serious: Yes (Death)
  Sender: FDA-Public Use
  Company Number: PHHY2014US073192

PATIENT
  Age: 63 Year
  Sex: Male

DRUGS (2)
  1. TACROLIMUS [Suspect]
     Indication: IMMUNOSUPPRESSION
  2. DACLIZUMAB [Suspect]
     Indication: IMMUNOSUPPRESSION

REACTIONS (2)
  - Aortic stenosis [Fatal]
  - Hepatitis C [Unknown]
